FAERS Safety Report 10164484 (Version 1)
Quarter: 2014Q2

REPORT INFORMATION
  Report Type: Spontaneous
  Country: US (occurrence: US)
  Receive Date: 20140510
  Receipt Date: 20140510
  Transmission Date: 20141212
  Serious: No
  Sender: FDA-Public Use
  Company Number: US-BRISTOL-MYERS SQUIBB COMPANY-19530435

PATIENT
  Age: 64 Year
  Sex: Female
  Weight: 77.1 kg

DRUGS (2)
  1. BYDUREON  2MG SUSPENSION [Suspect]
     Indication: TYPE 2 DIABETES MELLITUS
     Dosage: THERAPY RESTRATED IN MAY2013
     Route: 058
  2. METFORMIN [Concomitant]
     Dosage: EVERY NIGHT AT BEDTIME

REACTIONS (2)
  - Pruritus generalised [Not Recovered/Not Resolved]
  - Pancreatic enzymes increased [Unknown]
